FAERS Safety Report 24285176 (Version 1)
Quarter: 2024Q3

REPORT INFORMATION
  Report Type: Report from Study
  Country: US (occurrence: US)
  Receive Date: 20240905
  Receipt Date: 20240905
  Transmission Date: 20241017
  Serious: Yes (Other)
  Sender: AMGEN
  Company Number: US-AMGEN-USASL2024171081

PATIENT
  Age: 55 Year
  Sex: Female

DRUGS (3)
  1. XGEVA [Suspect]
     Active Substance: DENOSUMAB
     Indication: Breast cancer metastatic
     Dosage: 120 MILLILITER, QMO
     Route: 065
     Dates: start: 202401
  2. XGEVA [Suspect]
     Active Substance: DENOSUMAB
     Indication: Neoplasm malignant
  3. VERZENIO [Concomitant]
     Active Substance: ABEMACICLIB

REACTIONS (17)
  - Haematochezia [Unknown]
  - Aphonia [Unknown]
  - Myalgia [Unknown]
  - Mobility decreased [Unknown]
  - Muscle spasms [Unknown]
  - Rhinorrhoea [Unknown]
  - Nasal congestion [Unknown]
  - Sneezing [Unknown]
  - Change of bowel habit [Unknown]
  - Stress [Unknown]
  - Fatigue [Unknown]
  - Pain in extremity [Unknown]
  - Cough [Unknown]
  - Arthralgia [Unknown]
  - Asthenia [Unknown]
  - Bone pain [Unknown]
  - Dyspnoea [Unknown]

NARRATIVE: CASE EVENT DATE: 20240718
